FAERS Safety Report 5546059-X (Version None)
Quarter: 2007Q4

REPORT INFORMATION
  Report Type: 
  Country: None (occurrence: None)
  Receive Date: 20071211
  Receipt Date: 20070912
  Transmission Date: 20080405
  Serious: No
  Sender: FDA-Public Use
  Company Number: US-BRISTOL-MYERS SQUIBB COMPANY-13907076

PATIENT
  Age: 30 Year
  Sex: Female
  Weight: 63 kg

DRUGS (4)
  1. EMSAM [Suspect]
  2. TEGRETOL [Concomitant]
  3. MACROBID [Concomitant]
  4. MOBIC [Concomitant]

REACTIONS (2)
  - CONSTIPATION [None]
  - HYPERTENSION [None]
